FAERS Safety Report 5595176-7 (Version None)
Quarter: 2008Q1

REPORT INFORMATION
  Report Type: 
  Country: None (occurrence: None)
  Receive Date: 20080117
  Receipt Date: 20080108
  Transmission Date: 20080703
  Serious: Yes (Other)
  Sender: FDA-Public Use
  Company Number: ES-PFIZER INC-2008001872

PATIENT
  Age: 64 Year
  Sex: Female

DRUGS (3)
  1. ALDACTONE [Suspect]
     Indication: CARDIAC FAILURE
     Route: 048
     Dates: start: 20071120, end: 20071126
  2. ENALAPRIL MALEATE [Interacting]
     Indication: CARDIAC FAILURE
     Route: 048
  3. COROPRES [Concomitant]
     Route: 048

REACTIONS (3)
  - DRUG INTERACTION [None]
  - HYPERKALAEMIA [None]
  - PALPITATIONS [None]
